FAERS Safety Report 20497360 (Version 1)
Quarter: 2022Q1

REPORT INFORMATION
  Report Type: Spontaneous
  Country: TW (occurrence: TW)
  Receive Date: 20220221
  Receipt Date: 20220221
  Transmission Date: 20220423
  Serious: Yes (Hospitalization, Other)
  Sender: FDA-Public Use
  Company Number: TW-ANIPHARMA-2022-TW-000013

PATIENT
  Age: 42 Year
  Sex: Male

DRUGS (1)
  1. OXACILLIN [Suspect]
     Active Substance: OXACILLIN SODIUM
     Indication: Product used for unknown indication

REACTIONS (1)
  - Drug reaction with eosinophilia and systemic symptoms [Unknown]
